FAERS Safety Report 8593812-4 (Version None)
Quarter: 2012Q3

REPORT INFORMATION
  Report Type: 
  Country: None (occurrence: None)
  Receive Date: 20120814
  Receipt Date: 20120807
  Transmission Date: 20120928
  Serious: Yes (Other)
  Sender: FDA-Public Use
  Company Number: FR-ROCHE-1082079

PATIENT
  Sex: Male
  Weight: 95 kg

DRUGS (4)
  1. OXEOL [Concomitant]
     Dates: start: 20110501
  2. XOLAIR [Suspect]
     Indication: ASTHMA
     Route: 058
     Dates: start: 20120406, end: 20120618
  3. FLUTICASONE PROPIONATE/SALMETEROL [Concomitant]
     Dates: start: 20110501
  4. BRICANYL [Concomitant]
     Dates: start: 20110501

REACTIONS (1)
  - ALLERGIC GRANULOMATOUS ANGIITIS [None]
